FAERS Safety Report 4951758-4 (Version None)
Quarter: 2006Q1

REPORT INFORMATION
  Report Type: 
  Country: None (occurrence: None)
  Receive Date: 20060323
  Receipt Date: 20060317
  Transmission Date: 20060701
  Serious: Yes (Hospitalization)
  Sender: FDA-Public Use
  Company Number: GXKR2006DE01201

PATIENT
  Age: 36 Year
  Sex: Female

DRUGS (1)
  1. AMOCLAV [Suspect]
     Indication: BRONCHOPNEUMONIA
     Dosage: 625MG PER DAY
     Route: 048

REACTIONS (1)
  - CHOLELITHIASIS [None]
